FAERS Safety Report 15171626 (Version 2)
Quarter: 2018Q3

REPORT INFORMATION
  Report Type: Report from Study
  Country: DE (occurrence: DE)
  Receive Date: 20180720
  Receipt Date: 20180830
  Transmission Date: 20181010
  Serious: Yes (Hospitalization)
  Sender: FDA-Public Use
  Company Number: DE-SA-2018SA184715

PATIENT
  Age: 68 Year
  Sex: Male
  Weight: 109 kg

DRUGS (10)
  1. OXALIPLATIN. [Suspect]
     Active Substance: OXALIPLATIN
     Dosage: 212 MILIGRAM DAILY
     Route: 042
     Dates: start: 20180607
  2. AVELUMAB [Suspect]
     Active Substance: AVELUMAB
     Dosage: 1120  MILLIGRAM DAILY
     Dates: start: 20180522
  3. OXALIPLATIN. [Suspect]
     Active Substance: OXALIPLATIN
     Dosage: 212 MILLIGRAM DAILY;
     Route: 042
     Dates: start: 20180508
  4. LEUCOVORINE [Suspect]
     Active Substance: LEUCOVORIN
     Indication: COLORECTAL CANCER METASTATIC
     Dosage: 1000 MILLIGRAM DAILY;
     Route: 042
     Dates: start: 20180608
  5. LEUCOVORINE [Suspect]
     Active Substance: LEUCOVORIN
     Dosage: 1000  MILLIGRAM DAILY
     Route: 042
     Dates: start: 20180508
  6. CETUXIMAB. [Suspect]
     Active Substance: CETUXIMAB
     Dosage: 625 MILLIGRAM DAILY;
     Route: 042
     Dates: start: 20180607
  7. AVELUMAB [Suspect]
     Active Substance: AVELUMAB
     Indication: COLORECTAL CANCER METASTATIC
     Dosage: 1120 MILLIGRAM DAILY;
     Route: 042
     Dates: start: 20180607
  8. 5?FU [FLUOROURACIL] [Suspect]
     Active Substance: FLUOROURACIL
     Indication: COLORECTAL CANCER METASTATIC
     Dosage: 1000 MILLIGRAM DAILY;
     Route: 042
     Dates: start: 20180508
  9. 5?FU [FLUOROURACIL] [Suspect]
     Active Substance: FLUOROURACIL
     Dosage: 1000  MILLIGRAM DAILY
     Route: 042
     Dates: start: 20180613
  10. CETUXIMAB. [Suspect]
     Active Substance: CETUXIMAB
     Indication: COLORECTAL CANCER METASTATIC
     Dosage: 625 MILLIGRAM DAILY
     Route: 042
     Dates: start: 20080108

REACTIONS (1)
  - Dermatitis acneiform [Not Recovered/Not Resolved]

NARRATIVE: CASE EVENT DATE: 20180618
